FAERS Safety Report 7103763-X (Version None)
Quarter: 2010Q4

REPORT INFORMATION
  Report Type: 
  Country: None (occurrence: None)
  Receive Date: 20101115
  Receipt Date: 20101108
  Transmission Date: 20110411
  Serious: Yes (Death, Other)
  Sender: FDA-Public Use
  Company Number: US-ROCHE-555703

PATIENT

DRUGS (2)
  1. CAPECITABINE [Suspect]
     Dosage: GIVEN 1000 MG/M2 OR 1250 MG/M2 TWICE DAILY IN A 3-WEEK-CYCLE (2 WEEKS ON TREATMENT, ONE WEEK OFF).
     Route: 048
  2. SUNITINIB MALATE [Suspect]
     Dosage: GIVEN DAILY ON A 6-WEEK-CYCLE. (FOUR WEEKS ON TREATMENT, 2 WEEKS OFF.)
     Route: 048

REACTIONS (14)
  - ABDOMINAL PAIN [None]
  - DIARRHOEA [None]
  - FATIGUE [None]
  - LEUKOPENIA [None]
  - LYMPHOPENIA [None]
  - MUCOSAL INFLAMMATION [None]
  - MYALGIA [None]
  - NAUSEA [None]
  - NEUTROPENIA [None]
  - PAIN IN EXTREMITY [None]
  - PALMAR-PLANTAR ERYTHRODYSAESTHESIA SYNDROME [None]
  - RENAL FAILURE ACUTE [None]
  - THROMBOCYTOPENIA [None]
  - VOMITING [None]
